FAERS Safety Report 6305308-0 (Version None)
Quarter: 2009Q3

REPORT INFORMATION
  Report Type: 
  Country: None (occurrence: None)
  Receive Date: 20090807
  Receipt Date: 20090724
  Transmission Date: 20100115
  Serious: Yes (Other)
  Sender: FDA-Public Use
  Company Number: 001405

PATIENT
  Age: 75 Year
  Sex: Female

DRUGS (6)
  1. OMEPRAZOLE [Suspect]
     Indication: GASTROOESOPHAGEAL REFLUX DISEASE
     Dosage: (ORAL)
     Route: 048
     Dates: start: 20081126, end: 20090209
  2. WARFARIN SODIUM [Suspect]
     Indication: ATRIAL FIBRILLATION
     Dosage: (1 MG ORAL)
     Route: 048
     Dates: start: 20081126
  3. CORDARONE [Suspect]
     Indication: ATRIAL FIBRILLATION
     Dosage: (ORAL)
     Route: 048
     Dates: start: 20081211
  4. BISOPROLOL [Concomitant]
  5. PARACETAMOL [Concomitant]
  6. FLOXACILLIN SODIUM [Concomitant]

REACTIONS (5)
  - BURNING SENSATION [None]
  - MALAISE [None]
  - PRURITUS [None]
  - RASH [None]
  - SYNCOPE [None]
